FAERS Safety Report 8340343 (Version 2)
Quarter: 2013Q4

REPORT INFORMATION
  Report Type: Spontaneous
  Country: CN (occurrence: CN)
  Receive Date: 20120117
  Receipt Date: 20131104
  Transmission Date: 20140711
  Serious: Yes (Other)
  Sender: FDA-Public Use
  Company Number: PHHY2012CN002763

PATIENT
  Age: 46 Year
  Sex: Male

DRUGS (2)
  1. TASIGNA [Suspect]
     Indication: CHRONIC MYELOID LEUKAEMIA
     Dosage: 200-300 MG, ONCE DAY
     Route: 048
     Dates: start: 20110410
  2. TASIGNA [Suspect]
     Dosage: UNK
     Dates: end: 20120110

REACTIONS (5)
  - Quality of life decreased [Recovering/Resolving]
  - Rash [Recovering/Resolving]
  - Headache [Recovering/Resolving]
  - Arthralgia [Recovering/Resolving]
  - Sleep disorder [Recovering/Resolving]
